FAERS Safety Report 5356142-X (Version None)
Quarter: 2007Q2

REPORT INFORMATION
  Report Type: 
  Country: None (occurrence: None)
  Receive Date: 20070613
  Receipt Date: 20070602
  Transmission Date: 20071010
  Serious: Yes (Other)
  Sender: FDA-Public Use
  Company Number: US-PFIZER INC-2007031538

PATIENT
  Sex: Female

DRUGS (3)
  1. CHANTIX [Suspect]
     Route: 061
     Dates: start: 20070301
  2. ORAJEL ^PHARMACEUTICALS^ [Suspect]
     Indication: TOOTH DISORDER
  3. NEXIUM [Suspect]

REACTIONS (3)
  - LARYNGEAL OPERATION [None]
  - LIP SWELLING [None]
  - TOOTH DISORDER [None]
